FAERS Safety Report 5650924-2 (Version None)
Quarter: 2008Q1

REPORT INFORMATION
  Report Type: 
  Country: None (occurrence: None)
  Receive Date: 20080131
  Receipt Date: 20071222
  Transmission Date: 20080703
  Serious: No
  Sender: FDA-Public Use
  Company Number: US200712002138

PATIENT
  Age: 70 Year
  Sex: Male

DRUGS (16)
  1. BYETTA [Suspect]
     Indication: TYPE 2 DIABETES MELLITUS
     Dosage: 5 UG, 2/D, SUBCUTANEOUS ; 10 UG, 2/D, SUBCUTANEOUS
     Route: 058
     Dates: start: 20071205, end: 20071218
  2. BYETTA [Suspect]
     Indication: TYPE 2 DIABETES MELLITUS
     Dosage: 5 UG, 2/D, SUBCUTANEOUS ; 10 UG, 2/D, SUBCUTANEOUS
     Route: 058
     Dates: start: 20071219
  3. HUMULIN /00646001/ (INSULIN HUMAN) [Concomitant]
  4. HUMULIN N [Concomitant]
  5. INSULIN, REGULAR (INSULIN) [Concomitant]
  6. ACTOS /USA/ (PIOGLITAZONE HYDROCHLORIDE) [Concomitant]
  7. ZETIA [Concomitant]
  8. NEXIUM /USA/ (ESOMEPRAZOLE) [Concomitant]
  9. COZAAR [Concomitant]
  10. AVODART [Concomitant]
  11. VIREAD [Concomitant]
  12. VIRAMUNE [Concomitant]
  13. EPZICOM [Concomitant]
  14. VITAMINS [Concomitant]
  15. MULTIVITAMINS PLUS IRON (FERROUS SULFATE, VITAMINS NOS) [Concomitant]
  16. STOOL SOFTENER (DOCUSATE SODIUM) [Concomitant]

REACTIONS (9)
  - ABDOMINAL DISTENSION [None]
  - BLOOD GLUCOSE INCREASED [None]
  - BLOOD PRESSURE INCREASED [None]
  - DECREASED APPETITE [None]
  - DRUG EFFECT DECREASED [None]
  - DYSGEUSIA [None]
  - DYSPEPSIA [None]
  - MUSCULAR WEAKNESS [None]
  - POLLAKIURIA [None]
